FAERS Safety Report 16634382 (Version 3)
Quarter: 2019Q4

REPORT INFORMATION
  Report Type: Spontaneous
  Country: DE (occurrence: DE)
  Receive Date: 20190726
  Receipt Date: 20191007
  Transmission Date: 20200122
  Serious: Yes (Hospitalization, Other)
  Sender: FDA-Public Use
  Company Number: DE-SUN PHARMACEUTICAL INDUSTRIES LTD-2019R1-214820

PATIENT
  Age: 33 Year
  Sex: Male

DRUGS (18)
  1. CEFUROXIM [Suspect]
     Active Substance: CEFUROXIME
     Dosage: 500 MG, Z (12 TABLETS)
     Route: 065
     Dates: start: 20180320, end: 20180326
  2. CIPROFLOXACIN. [Suspect]
     Active Substance: CIPROFLOXACIN
     Dosage: 250 MG, 16.01.2018 - 21.01.2018; 10 TABL.
     Route: 065
     Dates: start: 20180116, end: 20180121
  3. FURADANTIN [Suspect]
     Active Substance: NITROFURANTOIN
     Dosage: 100 MG, 10.03.2018 - 15.03.2018; 1X TGL. (INSGESAMT 4 TABL.)
     Route: 065
     Dates: start: 20180310, end: 20180315
  4. METAMIZOL [Suspect]
     Active Substance: METAMIZOLE SODIUM
     Indication: PRODUCT USED FOR UNKNOWN INDICATION
     Dosage: 500 MILLIGRAM, UNK (4 TABLETS)
     Route: 065
     Dates: start: 20180108, end: 20180111
  5. DYSURGAL [Concomitant]
     Indication: PRODUCT USED FOR UNKNOWN INDICATION
     Dosage: 0.5 MILLIGRAM, UNK (4 TABLETS)
     Route: 065
     Dates: start: 20180108, end: 20181111
  6. CIPROFLOXACIN. [Suspect]
     Active Substance: CIPROFLOXACIN
     Indication: PRODUCT USED FOR UNKNOWN INDICATION
     Dosage: 250 MG, 27.12.2017 - 31.12.2017; 9 TABL.
     Route: 065
     Dates: start: 20171227, end: 20171231
  7. CIPROFLOXACIN. [Suspect]
     Active Substance: CIPROFLOXACIN
     Dosage: 500 MG, 05.02.2018 - 09.02.2018; 10 TABL.
     Route: 065
     Dates: start: 20180205, end: 20180209
  8. CEFUROXIM [Suspect]
     Active Substance: CEFUROXIME
     Dosage: 500 MG, 20.03.2018 - 26.03.2018 ; 12 TABL.
     Route: 065
  9. CEFUROXIM [Suspect]
     Active Substance: CEFUROXIME
     Dosage: 500 MILLIGRAM, 27.03.2018 - 01.04.2018; 12 TABL
     Route: 065
     Dates: start: 20180327, end: 20180401
  10. IBUPROFEN. [Concomitant]
     Active Substance: IBUPROFEN
     Indication: PRODUCT USED FOR UNKNOWN INDICATION
     Dosage: NK MG, AB 07.04.2018
     Route: 065
     Dates: start: 20180407
  11. MAGNESIUM [Suspect]
     Active Substance: MAGNESIUM
     Indication: PRODUCT USED FOR UNKNOWN INDICATION
     Dosage: NK MG, NK
     Route: 065
  12. METAMIZOL [Concomitant]
     Active Substance: METAMIZOLE SODIUM
     Indication: PRODUCT USED FOR UNKNOWN INDICATION
     Dosage: 500 MG, 08.01.2018 - 11.01.2018; 4 TABL.
     Route: 065
     Dates: start: 20180108, end: 20180111
  13. LORAZEPAM. [Concomitant]
     Active Substance: LORAZEPAM
     Indication: PRODUCT USED FOR UNKNOWN INDICATION
     Dosage: NK MG, AB 29.04.2018
     Route: 065
     Dates: start: 20180429
  14. TAMSULOSIN [Concomitant]
     Active Substance: TAMSULOSIN
     Indication: PRODUCT USED FOR UNKNOWN INDICATION
     Dosage: NK MG, .2017 - 05.01.2018
     Route: 065
     Dates: start: 2017, end: 20180105
  15. CEFUROXIM [Suspect]
     Active Substance: CEFUROXIME
     Indication: PRODUCT USED FOR UNKNOWN INDICATION
     Dosage: NK MG, 31.12.2017 - 05.01.2018; 10 TABL. ()
     Route: 065
     Dates: start: 20171231, end: 20180105
  16. FURADANTIN [Suspect]
     Active Substance: NITROFURANTOIN
     Indication: PRODUCT USED FOR UNKNOWN INDICATION
     Dosage: 100 MG, 10.02.2018 - 20.02.2018; 20 TABL.
     Route: 065
     Dates: start: 20180210, end: 20180220
  17. DYSURGAL 0.5MG [Concomitant]
     Indication: PRODUCT USED FOR UNKNOWN INDICATION
     Dosage: 0.5 MG, 08.01.2018 - 11.11.2018; 4 TABL.
     Route: 065
     Dates: start: 20180108, end: 20181111
  18. IBUPROFEN. [Suspect]
     Active Substance: IBUPROFEN
     Indication: PRODUCT USED FOR UNKNOWN INDICATION
     Dosage: UNK (NK MG)
     Route: 065
     Dates: start: 20180407

REACTIONS (5)
  - Fatigue [Unknown]
  - Arthralgia [Unknown]
  - Suicidal ideation [Unknown]
  - Muscular weakness [Unknown]
  - Hallucination [Unknown]
